FAERS Safety Report 5639419-X (Version None)
Quarter: 2008Q1

REPORT INFORMATION
  Report Type: 
  Country: None (occurrence: None)
  Receive Date: 20080226
  Receipt Date: 20080214
  Transmission Date: 20080703
  Serious: Yes (Other)
  Sender: FDA-Public Use
  Company Number: CN-PFIZER INC-2008014203

PATIENT
  Age: 46 Year
  Sex: Male

DRUGS (1)
  1. SOLU-MEDROL [Suspect]
     Indication: EYE DISORDER
     Route: 042
     Dates: start: 20070801, end: 20070901

REACTIONS (1)
  - DEAFNESS [None]
